FAERS Safety Report 10602146 (Version 1)
Quarter: 2014Q4

REPORT INFORMATION
  Report Type: Spontaneous
  Country: TW (occurrence: None)
  Receive Date: 20141120
  Receipt Date: 20141120
  Transmission Date: 20150529
  Serious: Yes (Hospitalization)
  Sender: FDA-Public Use
  Company Number: 2014-20728

PATIENT
  Age: 82 Year
  Sex: Male
  Weight: 63 kg

DRUGS (10)
  1. EYLEA [Suspect]
     Active Substance: AFLIBERCEPT
     Indication: NEOVASCULAR AGE-RELATED MACULAR DEGENERATION
     Route: 031
     Dates: start: 20140521, end: 20140521
  2. LIPANTHYL (FENOFIBRATE) [Concomitant]
  3. GLIMEPIRIDE HYDROCHLORIDE [Concomitant]
  4. AMARYL [Concomitant]
     Active Substance: GLIMEPIRIDE
  5. METFORMIN HYDROCHLORIDE. [Concomitant]
     Active Substance: METFORMIN HYDROCHLORIDE
  6. SPIRIVA (TIOTROPIUM BROMIDE) [Concomitant]
  7. METFORMIN HYDROCHLORIDE. [Concomitant]
     Active Substance: METFORMIN HYDROCHLORIDE
  8. AVODART (DUTASTERIDE) [Concomitant]
  9. JANUVIA [Concomitant]
     Active Substance: SITAGLIPTIN PHOSPHATE
  10. ADOAIR (FLUTICASONE PROPIONATE, SALMETEROL XINAFOATE) [Concomitant]

REACTIONS (2)
  - Pyrexia [None]
  - Headache [None]

NARRATIVE: CASE EVENT DATE: 20140921
